FAERS Safety Report 16470183 (Version 1)
Quarter: 2019Q2

REPORT INFORMATION
  Report Type: Report from Study
  Country: US (occurrence: US)
  Receive Date: 20190624
  Receipt Date: 20190624
  Transmission Date: 20190711
  Serious: Yes (Hospitalization)
  Sender: FDA-Public Use
  Company Number: US-CELGENEUS-USA-20190307153

PATIENT
  Age: 75 Year
  Sex: Male
  Weight: 83.99 kg

DRUGS (1)
  1. VIDAZA [Suspect]
     Active Substance: AZACITIDINE
     Indication: ACUTE MYELOID LEUKAEMIA
     Dosage: 148 MILLIGRAM
     Route: 058
     Dates: start: 20150601, end: 20150605

REACTIONS (3)
  - Anaemia [Recovered/Resolved]
  - Acute myocardial infarction [Recovered/Resolved]
  - Pancytopenia [Recovered/Resolved]

NARRATIVE: CASE EVENT DATE: 20150612
